FAERS Safety Report 17437563 (Version 1)
Quarter: 2020Q1

REPORT INFORMATION
  Report Type: Spontaneous
  Country: GB (occurrence: GB)
  Receive Date: 20200219
  Receipt Date: 20200219
  Transmission Date: 20200409
  Serious: Yes (Other)
  Sender: FDA-Public Use
  Company Number: GB-ANIPHARMA-2020-UK-000030

PATIENT
  Age: 71 Year
  Sex: Male

DRUGS (9)
  1. DOCUSATE [Concomitant]
     Active Substance: DOCUSATE
     Dosage: UNKNOWN
     Route: 065
  2. CLOPIDOGREL HYDROGEN SULFATE [Concomitant]
     Active Substance: CLOPIDOGREL BISULFATE
     Dosage: UNKNOWN
     Route: 065
  3. COLECALCIFEROL [Concomitant]
     Active Substance: CHOLECALCIFEROL
     Dosage: UNKNOWN
     Route: 065
  4. ACETYLSALICYLIC ACID [Concomitant]
     Active Substance: ASPIRIN
     Dosage: UNKNOWN
     Route: 065
  5. ATORVASTATIN CALCIUM. [Concomitant]
     Active Substance: ATORVASTATIN CALCIUM
     Dosage: UNKNOWN
     Route: 065
  6. FOLIC ACID. [Concomitant]
     Active Substance: FOLIC ACID
     Dosage: UNKNOWN
     Route: 065
  7. FAMOTIDINE. [Concomitant]
     Active Substance: FAMOTIDINE
     Dosage: UNKNOWN
     Route: 065
  8. BISOPROLOL [Concomitant]
     Active Substance: BISOPROLOL
     Dosage: UNKNOWN
     Route: 065
  9. BICALUTAMIDE. [Suspect]
     Active Substance: BICALUTAMIDE
     Indication: PROSTATE CANCER METASTATIC
     Dosage: 150 MG DAILY
     Route: 048
     Dates: start: 201905, end: 20200129

REACTIONS (5)
  - Depressed mood [Unknown]
  - Inappropriate antidiuretic hormone secretion [Unknown]
  - Chest pain [Unknown]
  - Off label use [Recovered/Resolved]
  - Biliary colic [Unknown]

NARRATIVE: CASE EVENT DATE: 20200124
